FAERS Safety Report 4988045-4 (Version None)
Quarter: 2006Q2

REPORT INFORMATION
  Report Type: 
  Country: None (occurrence: None)
  Receive Date: 20060424
  Receipt Date: 20060407
  Transmission Date: 20061013
  Serious: Yes (Other)
  Sender: FDA-Public Use
  Company Number: DSA_28036_2006

PATIENT
  Age: 46 Year
  Sex: Male

DRUGS (1)
  1. TAVOR     /00273201/ [Suspect]
     Dosage: DF ONCE PO
     Route: 048
     Dates: start: 20060305, end: 20060305

REACTIONS (4)
  - DEPRESSED LEVEL OF CONSCIOUSNESS [None]
  - INTENTIONAL OVERDOSE [None]
  - SALIVARY HYPERSECRETION [None]
  - SUICIDE ATTEMPT [None]
